FAERS Safety Report 13544551 (Version 1)
Quarter: 2017Q2

REPORT INFORMATION
  Report Type: Spontaneous
  Country: US (occurrence: US)
  Receive Date: 20170512
  Receipt Date: 20170512
  Transmission Date: 20170830
  Serious: Yes (Hospitalization)
  Sender: FDA-Public Use
  Company Number: None

PATIENT
  Age: 66 Year
  Sex: Female

DRUGS (7)
  1. SYNTHROID [Concomitant]
     Active Substance: LEVOTHYROXINE SODIUM
  2. HYDROXYCHLOROQUINE [Concomitant]
     Active Substance: HYDROXYCHLOROQUINE
  3. SAMSCA [Suspect]
     Active Substance: TOLVAPTAN
     Indication: HYPONATRAEMIA
     Dosage: ONE TABLET EVERY MWF + SAT BY MOUTH
     Route: 048
     Dates: start: 20161203, end: 20170511
  4. XIFAXAN [Concomitant]
     Active Substance: RIFAXIMIN
  5. SOTALOL. [Concomitant]
     Active Substance: SOTALOL
  6. FUROSEMIDE. [Concomitant]
     Active Substance: FUROSEMIDE
  7. METOCLOPRAMIDE. [Concomitant]
     Active Substance: METOCLOPRAMIDE

REACTIONS (2)
  - Blood sodium decreased [None]
  - Dyspnoea [None]

NARRATIVE: CASE EVENT DATE: 20170511
